FAERS Safety Report 18004653 (Version 1)
Quarter: 2020Q3

REPORT INFORMATION
  Report Type: Spontaneous
  Country: FR (occurrence: FR)
  Receive Date: 20200709
  Receipt Date: 20200709
  Transmission Date: 20201103
  Serious: Yes (Death)
  Sender: FDA-Public Use
  Company Number: FR-ALSI-202000234

PATIENT
  Age: 65 Year
  Sex: Female

DRUGS (1)
  1. OXYGEN. [Suspect]
     Active Substance: OXYGEN
     Indication: PRODUCT USED FOR UNKNOWN INDICATION
     Route: 055
     Dates: start: 20190926, end: 20200526

REACTIONS (4)
  - Intentional product misuse [Fatal]
  - Accident [Fatal]
  - Death [Fatal]
  - Thermal burn [Fatal]
